FAERS Safety Report 4910465-4 (Version None)
Quarter: 2006Q1

REPORT INFORMATION
  Report Type: 
  Country: None (occurrence: None)
  Receive Date: 20060209
  Receipt Date: 20060131
  Transmission Date: 20060701
  Serious: Yes (Other)
  Sender: FDA-Public Use
  Company Number: 2006015881

PATIENT
  Age: 25 Year
  Sex: Female
  Weight: 56.246 kg

DRUGS (2)
  1. ZOLOFT [Suspect]
     Indication: ANXIETY
     Dates: start: 20050101
  2. ZOLOFT [Suspect]
     Indication: DEPRESSION
     Dates: start: 20050101

REACTIONS (7)
  - ABNORMAL BEHAVIOUR [None]
  - ALCOHOL USE [None]
  - ANTISOCIAL BEHAVIOUR [None]
  - DEPRESSION [None]
  - DRUG ABUSER [None]
  - MOOD SWINGS [None]
  - SOCIAL AVOIDANT BEHAVIOUR [None]
